FAERS Safety Report 7620266-4 (Version None)
Quarter: 2011Q3

REPORT INFORMATION
  Report Type: 
  Country: None (occurrence: None)
  Receive Date: 20110719
  Receipt Date: 20110708
  Transmission Date: 20111222
  Serious: Yes (Hospitalization)
  Sender: FDA-Public Use
  Company Number: PHHY2011US63135

PATIENT
  Sex: Female

DRUGS (3)
  1. GILENYA [Suspect]
     Indication: RELAPSING-REMITTING MULTIPLE SCLEROSIS
     Dosage: 0.5 MG, QD
     Route: 048
     Dates: start: 20110111, end: 20110403
  2. VITAMIN B COMPLEX CAP [Concomitant]
     Dosage: UNK UKN, OT
     Route: 048
  3. AMANTADINE HCL [Concomitant]
     Dosage: 100 MG, BID
     Route: 048

REACTIONS (5)
  - CENTRAL NERVOUS SYSTEM LESION [None]
  - HYPOAESTHESIA ORAL [None]
  - APHASIA [None]
  - SPEECH DISORDER [None]
  - CHEST PAIN [None]
